FAERS Safety Report 11355075 (Version 1)
Quarter: 2015Q3

REPORT INFORMATION
  Report Type: Spontaneous
  Country: US (occurrence: US)
  Receive Date: 20150807
  Receipt Date: 20150807
  Transmission Date: 20151125
  Serious: No
  Sender: FDA-Public Use
  Company Number: US-JNJFOC-20150720288

PATIENT
  Age: 79 Year
  Sex: Male
  Weight: 108.86 kg

DRUGS (8)
  1. LISINOPRIL. [Concomitant]
     Active Substance: LISINOPRIL
     Indication: BLOOD PRESSURE MEASUREMENT
     Route: 065
  2. CAYENNE [Concomitant]
     Indication: NUTRITIONAL SUPPLEMENTATION
     Route: 065
  3. GARLIC. [Concomitant]
     Active Substance: GARLIC
     Indication: NUTRITIONAL SUPPLEMENTATION
     Route: 065
  4. TEA [Concomitant]
     Active Substance: TEA LEAF
     Indication: NUTRITIONAL SUPPLEMENTATION
     Route: 065
  5. ZYRTEC [Suspect]
     Active Substance: CETIRIZINE HYDROCHLORIDE
     Route: 048
  6. WHEATGRASS JUICE [Concomitant]
     Indication: NUTRITIONAL SUPPLEMENTATION
     Route: 065
  7. ZYRTEC [Suspect]
     Active Substance: CETIRIZINE HYDROCHLORIDE
     Indication: MULTIPLE ALLERGIES
     Route: 048
     Dates: start: 20150706, end: 20150723
  8. ALL OTHER THERAPEUTIC PRODUCT [Concomitant]
     Active Substance: UNSPECIFIED INGREDIENT
     Indication: NUTRITIONAL SUPPLEMENTATION
     Route: 065

REACTIONS (3)
  - Balance disorder [Recovered/Resolved]
  - Wrong patient received medication [Recovered/Resolved]
  - Feeling drunk [Recovered/Resolved]
